FAERS Safety Report 20481351 (Version 2)
Quarter: 2022Q1

REPORT INFORMATION
  Report Type: Spontaneous
  Country: US (occurrence: US)
  Receive Date: 20220216
  Receipt Date: 20220303
  Transmission Date: 20220423
  Serious: Yes (Hospitalization, Other)
  Sender: FDA-Public Use
  Company Number: US-JAZZ-2022-US-003070

PATIENT
  Age: 36 Year
  Sex: Female
  Weight: 109 kg

DRUGS (5)
  1. XYREM [Suspect]
     Active Substance: SODIUM OXYBATE
     Indication: Product used for unknown indication
     Dosage: INGESTED A BOTTLE OF XYREM 500 MG/ML, LIQUID UNK AMOUT
  2. OMEPRAZOLE [Concomitant]
     Active Substance: OMEPRAZOLE
  3. GLYCOPYRROLATE [Concomitant]
     Active Substance: GLYCOPYRROLATE
  4. CLONAZEPAM [Concomitant]
     Active Substance: CLONAZEPAM
  5. MONTELUKAST [Concomitant]
     Active Substance: MONTELUKAST SODIUM

REACTIONS (5)
  - Suicide attempt [Recovering/Resolving]
  - Hypothermia [Recovering/Resolving]
  - Headache [Recovering/Resolving]
  - Hypertension [Recovering/Resolving]
  - Nausea [Recovering/Resolving]
